FAERS Safety Report 9254550 (Version 1)
Quarter: 2013Q2

REPORT INFORMATION
  Report Type: Spontaneous
  Country: BR (occurrence: BR)
  Receive Date: 20130425
  Receipt Date: 20130425
  Transmission Date: 20140414
  Serious: Yes (Other)
  Sender: FDA-Public Use
  Company Number: BR-PFIZER INC-2013125076

PATIENT
  Age: 57 Year
  Sex: Female

DRUGS (2)
  1. XALATAN [Suspect]
     Indication: GLAUCOMA
     Dosage: 1 DROP EACH EYE, TWICE A DAY (EVERY 12 HOURS)
     Route: 047
     Dates: start: 2010, end: 201304
  2. LUMIGAN [Concomitant]
     Indication: GLAUCOMA
     Dosage: UNK
     Dates: start: 2008

REACTIONS (3)
  - Cerebrovascular accident [Unknown]
  - Visual acuity reduced [Not Recovered/Not Resolved]
  - Incorrect dose administered [Unknown]
